FAERS Safety Report 20837283 (Version 1)
Quarter: 2022Q2

REPORT INFORMATION
  Report Type: Spontaneous
  Country: US (occurrence: US)
  Receive Date: 20220517
  Receipt Date: 20220517
  Transmission Date: 20220721
  Serious: No
  Sender: FDA-Public Use
  Company Number: US-ALLERGAN-2127984US

PATIENT
  Age: 87 Year
  Sex: Male

DRUGS (1)
  1. ASACOL HD [Suspect]
     Active Substance: MESALAMINE
     Indication: Crohn^s disease
     Dosage: 1 DF, TID

REACTIONS (6)
  - Constipation [Recovered/Resolved]
  - Dementia [Unknown]
  - Off label use [Unknown]
  - Diarrhoea [Unknown]
  - Haematochezia [Unknown]
  - Product complaint [Unknown]
